FAERS Safety Report 24266377 (Version 1)
Quarter: 2024Q3

REPORT INFORMATION
  Report Type: Spontaneous
  Country: JP (occurrence: JP)
  Receive Date: 20240830
  Receipt Date: 20240830
  Transmission Date: 20241017
  Serious: Yes (Death, Other)
  Sender: GENMAB
  Company Number: JP-GENMAB-2024-01712AA

PATIENT
  Age: 72 Year
  Sex: Male

DRUGS (9)
  1. EPKINLY [Suspect]
     Active Substance: EPCORITAMAB-BYSP
     Indication: Diffuse large B-cell lymphoma
     Dosage: 0.16 MILLIGRAM, SINGLE
     Route: 065
     Dates: start: 202401, end: 202401
  2. EPKINLY [Suspect]
     Active Substance: EPCORITAMAB-BYSP
     Dosage: 0.8 MILLIGRAM, SINGLE
     Route: 065
     Dates: start: 2024, end: 2024
  3. EPKINLY [Suspect]
     Active Substance: EPCORITAMAB-BYSP
     Dosage: 48 MILLIGRAM, UP TO THE THIRD ADMINISTRATION IN CYCLE 2
     Route: 065
     Dates: start: 2024, end: 2024
  4. CORTICOTROPIN [Concomitant]
     Active Substance: CORTICOTROPIN
     Indication: Prophylaxis
     Dosage: UNK
     Dates: start: 2024
  5. ACETAMINOPHEN [Concomitant]
     Active Substance: ACETAMINOPHEN
     Indication: Prophylaxis
     Dosage: UNK
     Dates: start: 2024
  6. POLATUZUMAB VEDOTIN [Concomitant]
     Active Substance: POLATUZUMAB VEDOTIN
     Dosage: UNK, SINGLE, POLA THERAPY
     Dates: start: 2024, end: 2024
  7. GEMCITABINE [Concomitant]
     Active Substance: GEMCITABINE
     Dosage: UNK, SINGLE, GDP THERAPY
     Dates: start: 2024, end: 2024
  8. DEXAMETHASONE [Concomitant]
     Active Substance: DEXAMETHASONE
     Dosage: UNK, SINGLE, GDP THERAPY
     Dates: start: 2024, end: 2024
  9. CISPLATIN [Concomitant]
     Active Substance: CISPLATIN
     Dosage: UNK, SINGLE, GDP THERAPY
     Dates: start: 2024, end: 2024

REACTIONS (2)
  - Diffuse large B-cell lymphoma [Fatal]
  - Cytokine release syndrome [Unknown]

NARRATIVE: CASE EVENT DATE: 20240101
